FAERS Safety Report 20709444 (Version 1)
Quarter: 2022Q2

REPORT INFORMATION
  Report Type: Spontaneous
  Country: US (occurrence: None)
  Receive Date: 20220413
  Receipt Date: 20220413
  Transmission Date: 20220721
  Serious: Yes (Other)
  Sender: FDA-Public Use
  Company Number: None

PATIENT
  Sex: Female

DRUGS (1)
  1. PACLITAXEL [Suspect]
     Active Substance: PACLITAXEL
     Indication: Lung neoplasm malignant
     Route: 042

REACTIONS (5)
  - Infusion related reaction [None]
  - Unresponsive to stimuli [None]
  - Somnolence [None]
  - Syncope [None]
  - Therapy cessation [None]

NARRATIVE: CASE EVENT DATE: 20220401
